FAERS Safety Report 6140890-8 (Version None)
Quarter: 2009Q2

REPORT INFORMATION
  Report Type: 
  Country: None (occurrence: None)
  Receive Date: 20090402
  Receipt Date: 20080718
  Transmission Date: 20091009
  Serious: No
  Sender: FDA-Public Use
  Company Number: US-KINGPHARMUSA00001-K200800851

PATIENT
  Sex: Male

DRUGS (7)
  1. SKELAXIN [Suspect]
     Indication: BACK INJURY
     Dosage: 1600 MG, TID
     Route: 048
     Dates: start: 20080707, end: 20080714
  2. SKELAXIN [Suspect]
     Dosage: 800 MG, TID
     Route: 048
     Dates: start: 20080714
  3. PAXIL [Concomitant]
     Indication: ANXIETY
     Dosage: 30 MG, QD
     Route: 048
     Dates: start: 20050101
  4. PAXIL [Concomitant]
     Indication: PANIC DISORDER
  5. ALPRAZOLAM [Concomitant]
     Indication: ANXIETY
     Dosage: 1 MG, BID
     Route: 048
     Dates: start: 20050101
  6. ALPRAZOLAM [Concomitant]
     Indication: PANIC DISORDER
  7. NEXIUM [Concomitant]
     Indication: GASTROOESOPHAGEAL REFLUX DISEASE
     Dosage: 1 DF, QD

REACTIONS (6)
  - DRUG DISPENSING ERROR [None]
  - DYSPNOEA [None]
  - FATIGUE [None]
  - NERVOUSNESS [None]
  - TREMOR [None]
  - WRONG DRUG ADMINISTERED [None]
